FAERS Safety Report 4316704-5 (Version None)
Quarter: 2004Q1

REPORT INFORMATION
  Report Type: 
  Country: None (occurrence: None)
  Receive Date: 20040311
  Receipt Date: 20040303
  Transmission Date: 20041129
  Serious: Yes (Other)
  Sender: FDA-Public Use
  Company Number: 2004202162US

PATIENT
  Age: 84 Year
  Sex: Female

DRUGS (4)
  1. BEXTRA [Suspect]
     Indication: KNEE OPERATION
     Dosage: 10 MG, QD
     Dates: start: 20040227, end: 20040301
  2. FOSAMAX [Concomitant]
  3. LIPITOR [Concomitant]
  4. FEMHRT [Concomitant]

REACTIONS (2)
  - PRURITUS [None]
  - RASH PAPULAR [None]
